FAERS Safety Report 16183525 (Version 1)
Quarter: 2019Q2

REPORT INFORMATION
  Report Type: Spontaneous
  Country: US (occurrence: US)
  Receive Date: 20190411
  Receipt Date: 20190411
  Transmission Date: 20190711
  Serious: No
  Sender: FDA-Public Use
  Company Number: US-HIKMA PHARMACEUTICALS USA INC.-US-H14001-18-03901

PATIENT
  Sex: Female
  Weight: 83.99 kg

DRUGS (1)
  1. BUTORPHANOL TARTARATE [Suspect]
     Active Substance: BUTORPHANOL
     Indication: MIGRAINE
     Dosage: 1 SPRAY
     Route: 045

REACTIONS (1)
  - Accidental underdose [Unknown]
